FAERS Safety Report 14837050 (Version 1)
Quarter: 2018Q2

REPORT INFORMATION
  Report Type: Spontaneous
  Country: FR (occurrence: FR)
  Receive Date: 20180502
  Receipt Date: 20180502
  Transmission Date: 20180711
  Serious: Yes (Other)
  Sender: FDA-Public Use
  Company Number: FR-MERCK KGAA-2046993

PATIENT
  Age: 44 Year
  Sex: Male

DRUGS (1)
  1. NOVOTHYROX [Suspect]
     Active Substance: LEVOTHYROXINE SODIUM
     Indication: PRODUCT USED FOR UNKNOWN INDICATION
     Dates: start: 201706

REACTIONS (25)
  - General physical health deterioration [None]
  - Mood swings [None]
  - Anxiety [None]
  - Fatigue [None]
  - Myalgia [None]
  - Irritability [None]
  - Self esteem decreased [None]
  - Low density lipoprotein increased [None]
  - Blood thyroid stimulating hormone decreased [None]
  - Depression [None]
  - Somnolence [None]
  - Asocial behaviour [None]
  - Decreased interest [None]
  - Apathy [None]
  - Affective disorder [None]
  - Headache [None]
  - Alopecia [None]
  - Emotional distress [None]
  - Pain [None]
  - Loss of libido [None]
  - Partner stress [None]
  - Social avoidant behaviour [None]
  - Total cholesterol/HDL ratio increased [None]
  - Insomnia [None]
  - Asthenia [None]

NARRATIVE: CASE EVENT DATE: 2017
